FAERS Safety Report 13377089 (Version 1)
Quarter: 2017Q1

REPORT INFORMATION
  Report Type: Spontaneous
  Country: DE (occurrence: DE)
  Receive Date: 20170328
  Receipt Date: 20170328
  Transmission Date: 20170429
  Serious: Yes (Other)
  Sender: FDA-Public Use
  Company Number: DE-UCBSA-2017008435

PATIENT
  Sex: Female
  Weight: 42.7 kg

DRUGS (3)
  1. VALPROATE [Concomitant]
     Active Substance: VALPROIC ACID
     Indication: EPILEPSY
     Dosage: 250 MG/DAY
  2. BRIVIACT [Suspect]
     Active Substance: BRIVARACETAM
     Indication: EPILEPSY
     Dosage: 20 MG, 2X/DAY (BID)
     Route: 048
     Dates: start: 20160517, end: 201610
  3. INOVELON [Concomitant]
     Active Substance: RUFINAMIDE
     Indication: EPILEPSY
     Dosage: 600 MG/DAY

REACTIONS (1)
  - Gastrooesophageal reflux disease [Not Recovered/Not Resolved]

NARRATIVE: CASE EVENT DATE: 201610
